FAERS Safety Report 11450808 (Version 1)
Quarter: 2015Q3

REPORT INFORMATION
  Report Type: Spontaneous
  Country: US (occurrence: None)
  Receive Date: 20150902
  Receipt Date: 20150902
  Transmission Date: 20151125
  Serious: Yes (Other)
  Sender: FDA-Public Use
  Company Number: None

PATIENT
  Age: 48 Year
  Sex: Female

DRUGS (1)
  1. HUMIRA [Suspect]
     Active Substance: ADALIMUMAB
     Indication: RHEUMATOID ARTHRITIS
     Dosage: 40MG ORAL EVERY 2 WEEKS?10/13/2015 TO 6/2015 (NO EXACT
     Route: 048

REACTIONS (1)
  - Psoriasis [None]

NARRATIVE: CASE EVENT DATE: 20150601
